FAERS Safety Report 4569513-6 (Version None)
Quarter: 2005Q1

REPORT INFORMATION
  Report Type: 
  Country: None (occurrence: None)
  Receive Date: 20050203
  Receipt Date: 20050124
  Transmission Date: 20050727
  Serious: Yes (Hospitalization, Other)
  Sender: FDA-Public Use
  Company Number: US-JNJFOC-20040903064

PATIENT
  Sex: Female
  Weight: 88.45 kg

DRUGS (13)
  1. TOPAMAX [Suspect]
     Indication: OBESITY
     Route: 049
  2. TOPAMAX [Suspect]
     Indication: AFFECT LABILITY
     Route: 049
  3. TOPAMAX [Suspect]
     Indication: HEADACHE
     Route: 049
  4. TOPAMAX [Suspect]
     Indication: INSOMNIA
     Route: 049
  5. EFFEXOR [Concomitant]
  6. LEXAPRO [Concomitant]
  7. ORTHO-NOVUM [Concomitant]
  8. GLUCOPHAGE [Concomitant]
  9. TOPROL-XL [Concomitant]
  10. LIPITOR [Concomitant]
  11. ALUMINUM HYDROXIDE AND MAGNESIUM TRISILICATE [Concomitant]
  12. ALUMINUM HYDROXIDE AND MAGNESIUM TRISILICATE [Concomitant]
  13. VANIQA [Concomitant]

REACTIONS (1)
  - MYOCARDIAL INFARCTION [None]
